FAERS Safety Report 8598713-3 (Version None)
Quarter: 2012Q3

REPORT INFORMATION
  Report Type: 
  Country: None (occurrence: None)
  Receive Date: 20120816
  Receipt Date: 19960306
  Transmission Date: 20120928
  Serious: Yes (Other)
  Sender: FDA-Public Use
  Company Number: US-ROCHE-1100711

PATIENT
  Sex: Female

DRUGS (5)
  1. ACTIVASE [Suspect]
     Indication: ACUTE MYOCARDIAL INFARCTION
  2. ASPIRIN [Concomitant]
  3. MAGNESIUM SULFATE [Concomitant]
  4. NITROGLYCERIN [Concomitant]
  5. HEPARIN [Concomitant]

REACTIONS (1)
  - EXTRASYSTOLES [None]
